FAERS Safety Report 4882139-X (Version None)
Quarter: 2006Q1

REPORT INFORMATION
  Report Type: 
  Country: None (occurrence: None)
  Receive Date: 20060117
  Receipt Date: 20051004
  Transmission Date: 20060701
  Serious: Yes (Hospitalization)
  Sender: FDA-Public Use
  Company Number: US-MERCK-0510USA03867

PATIENT
  Age: 76 Year
  Sex: Female
  Weight: 59 kg

DRUGS (3)
  1. VIOXX [Suspect]
     Indication: PAIN
     Route: 048
     Dates: start: 20040301, end: 20040601
  2. ASPIRIN [Concomitant]
     Route: 065
  3. CELEBREX [Concomitant]
     Route: 065
     Dates: start: 20010101, end: 20040229

REACTIONS (2)
  - GALLBLADDER DISORDER [None]
  - MYOCARDIAL INFARCTION [None]
